FAERS Safety Report 25014712 (Version 2)
Quarter: 2025Q1

REPORT INFORMATION
  Report Type: Report from Study
  Country: US (occurrence: US)
  Receive Date: 20250226
  Receipt Date: 20250307
  Transmission Date: 20250409
  Serious: Yes (Other)
  Sender: EMD SERONO INC
  Company Number: US-Merck Healthcare KGaA-2025005948

PATIENT
  Age: 55 Year
  Sex: Female

DRUGS (3)
  1. MAVENCLAD [Suspect]
     Active Substance: CLADRIBINE
     Indication: Multiple sclerosis
  2. MAVENCLAD [Suspect]
     Active Substance: CLADRIBINE
  3. MAVENCLAD [Suspect]
     Active Substance: CLADRIBINE

REACTIONS (7)
  - Pancreatitis acute [Unknown]
  - Diarrhoea [Unknown]
  - Migraine [Unknown]
  - Lower respiratory tract congestion [Recovering/Resolving]
  - Upper respiratory tract infection [Unknown]
  - Chest discomfort [Unknown]
  - Band sensation [Unknown]

NARRATIVE: CASE EVENT DATE: 20250131
